FAERS Safety Report 6547430-X (Version None)
Quarter: 2010Q1

REPORT INFORMATION
  Report Type: 
  Country: None (occurrence: None)
  Receive Date: 20100122
  Receipt Date: 20100120
  Transmission Date: 20100710
  Serious: Yes (Death)
  Sender: FDA-Public Use
  Company Number: PHEH2009US17994

PATIENT
  Sex: Female

DRUGS (6)
  1. EXJADE [Suspect]
     Indication: BREAST CANCER FEMALE
     Dosage: 1500 MG, QD
     Route: 048
     Dates: start: 20091208
  2. EXJADE [Suspect]
     Indication: TRANSFUSION
  3. SEROQUEL [Concomitant]
  4. PROZAC [Concomitant]
  5. ALDACTAZIDE [Concomitant]
  6. ZANTAC [Concomitant]

REACTIONS (5)
  - DIARRHOEA [None]
  - MALIGNANT NEOPLASM PROGRESSION [None]
  - NAUSEA [None]
  - RASH [None]
  - VOMITING [None]
